FAERS Safety Report 14531385 (Version 4)
Quarter: 2019Q1

REPORT INFORMATION
  Report Type: Spontaneous
  Country: US (occurrence: US)
  Receive Date: 20180214
  Receipt Date: 20190314
  Transmission Date: 20190417
  Serious: Yes (Other)
  Sender: FDA-Public Use
  Company Number: US-PFIZER INC-2018065259

PATIENT
  Age: 53 Year
  Sex: Female
  Weight: 76.7 kg

DRUGS (57)
  1. TRIAMTERENE HCTZ [Concomitant]
     Active Substance: HYDROCHLOROTHIAZIDE\TRIAMTERENE
     Indication: BLOOD PRESSURE ABNORMAL
     Dosage: UNK
     Dates: start: 2010
  2. ACTIFED (PSEUDOEPHEDRINE HYDROCHLORIDE\TRIPROLIDINE HYDROCHLORIDE) [Concomitant]
     Active Substance: PSEUDOEPHEDRINE HYDROCHLORIDE\TRIPROLIDINE HYDROCHLORIDE
     Indication: NASOPHARYNGITIS
  3. ATENOLOL. [Concomitant]
     Active Substance: ATENOLOL
     Dosage: 25 MG, 1X/DAY
     Route: 048
  4. BIOTIN [Concomitant]
     Active Substance: BIOTIN
     Dosage: 500 MG-400 INTI UNITS ORAL TABLET,CHE\NABLE, 3 TAB, CHEWED, DAILY
     Route: 048
  5. FAMOTIDINE (OTC) [Concomitant]
     Dosage: UNK
  6. ZANTAC 75 (OTC) [Concomitant]
     Dosage: UNK
     Dates: start: 1998, end: 1999
  7. PROTONIX [Suspect]
     Active Substance: PANTOPRAZOLE SODIUM
     Dosage: 20.0MG UNKNOWN
     Dates: start: 2014
  8. PROTONIX [Suspect]
     Active Substance: PANTOPRAZOLE SODIUM
     Dosage: UNKNOWN
     Route: 048
     Dates: start: 20120911
  9. PREVACID [Suspect]
     Active Substance: LANSOPRAZOLE
     Indication: GASTRITIS
     Dosage: UNK
     Dates: start: 2000
  10. ASPIRIN. [Concomitant]
     Active Substance: ASPIRIN
     Dosage: UNK
     Route: 065
     Dates: start: 2013
  11. CEPHALEXIN. [Concomitant]
     Active Substance: CEPHALEXIN
     Dosage: 2 DF, 2X/DAY
     Route: 048
     Dates: start: 20000316
  12. MOTRIN [Concomitant]
     Active Substance: IBUPROFEN
     Indication: PAIN
  13. TYLENOL COLD + FLU [Concomitant]
     Active Substance: ACETAMINOPHEN\DEXTROMETHORPHAN\PSEUDOEPHEDRINE
     Indication: INFLUENZA
  14. PHENERGAN [Concomitant]
     Active Substance: PROMETHAZINE HYDROCHLORIDE
     Indication: NAUSEA
     Dosage: UNK
     Dates: start: 1997
  15. NEXIUM 24HR [Suspect]
     Active Substance: ESOMEPRAZOLE MAGNESIUM
     Indication: GASTRITIS
     Dosage: UNK
     Route: 048
  16. IBUPROFEN. [Concomitant]
     Active Substance: IBUPROFEN
     Dosage: 1 DF, 3X/DAY
     Route: 048
     Dates: start: 19940405
  17. MOTRIN [Concomitant]
     Active Substance: IBUPROFEN
     Indication: PYREXIA
     Dosage: UNK
     Dates: start: 1980
  18. ZOFRAN [Concomitant]
     Active Substance: ONDANSETRON HYDROCHLORIDE
     Indication: NAUSEA
     Dosage: 4 MG PRN
  19. FLEXERIL [Concomitant]
     Active Substance: CYCLOBENZAPRINE HYDROCHLORIDE
     Indication: MUSCLE SPASMS
     Dosage: 5 MG TABLET PRN
     Dates: start: 1993, end: 2010
  20. TYLENOL COLD + FLU [Concomitant]
     Active Substance: ACETAMINOPHEN\DEXTROMETHORPHAN\PSEUDOEPHEDRINE
     Indication: NASOPHARYNGITIS
     Dosage: UNK
     Dates: start: 1985
  21. PANTOPRAZOLE [Suspect]
     Active Substance: PANTOPRAZOLE
     Indication: GASTROOESOPHAGEAL REFLUX DISEASE
     Dosage: GENERCIC 20.0MG UNKNOWN
     Dates: start: 2010
  22. ALLOPURINOL. [Concomitant]
     Active Substance: ALLOPURINOL
     Dosage: 100 MG, 1X/DAY
     Route: 048
     Dates: start: 2015
  23. FAMOTIDINE. [Concomitant]
     Active Substance: FAMOTIDINE
  24. VALIUM [Concomitant]
     Active Substance: DIAZEPAM
     Indication: ANXIETY
     Dosage: 5 MG, 4X/DAY
     Dates: start: 1995
  25. MS CONTIN [Concomitant]
     Active Substance: MORPHINE SULFATE
     Indication: PAIN
     Dosage: UNK
  26. CRANBERRY PILLS [Concomitant]
     Indication: SUPPLEMENTATION THERAPY
     Dosage: UNK
     Dates: start: 2005
  27. PEPCID AC [Concomitant]
     Active Substance: FAMOTIDINE
     Dosage: UNK
     Dates: start: 2017, end: 2018
  28. NEXIUM 24HR [Suspect]
     Active Substance: ESOMEPRAZOLE MAGNESIUM
     Dosage: UNK
     Route: 048
     Dates: end: 2015
  29. ESOMEPRAZOLE MAGNESIUM. [Suspect]
     Active Substance: ESOMEPRAZOLE MAGNESIUM
     Indication: GASTRITIS
     Dosage: GENERIC
     Route: 065
     Dates: start: 2000, end: 2001
  30. PRILOSEC [Suspect]
     Active Substance: OMEPRAZOLE MAGNESIUM
     Indication: GASTROOESOPHAGEAL REFLUX DISEASE
     Dosage: UNK
     Route: 048
     Dates: start: 2010
  31. VITAMIN D2 [Concomitant]
     Active Substance: ERGOCALCIFEROL
     Indication: SUPPLEMENTATION THERAPY
     Dosage: UNK
     Dates: start: 1970
  32. COZAAR [Concomitant]
     Active Substance: LOSARTAN POTASSIUM
     Indication: BLOOD PRESSURE ABNORMAL
     Dosage: 25 MG, 1X/DAY
     Route: 048
     Dates: start: 20150212
  33. MAXZIDE [Concomitant]
     Active Substance: HYDROCHLOROTHIAZIDE\TRIAMTERENE
     Dosage: 50 MG-75 MG 1 TABLET ONCE A DAY
     Route: 048
  34. COLECALCIFEROL [Concomitant]
     Active Substance: CHOLECALCIFEROL
     Dosage: 1 DF, 1X/DAY
     Route: 048
  35. PREMARIN [Concomitant]
     Active Substance: ESTROGENS, CONJUGATED
     Indication: HORMONE REPLACEMENT THERAPY
     Dosage: UNK
     Dates: start: 1994, end: 2016
  36. ESOMEPRAZOLE. [Suspect]
     Active Substance: ESOMEPRAZOLE MAGNESIUM
     Indication: GASTRITIS
     Dosage: UNK
     Dates: start: 2000, end: 2001
  37. NAPROXEN. [Concomitant]
     Active Substance: NAPROXEN
     Dosage: 1 DF, 2X/DAY
     Route: 048
     Dates: start: 19950718
  38. SYNTHROID THYROID [Concomitant]
     Indication: THYROID DISORDER
     Dosage: UNK
     Dates: start: 1994
  39. CYMBALTA [Concomitant]
     Active Substance: DULOXETINE HYDROCHLORIDE
     Indication: DEPRESSION
     Dosage: 60.0MG ONCE/SINGLE ADMINISTRATION
     Route: 048
     Dates: start: 2012
  40. BENADRYL [Concomitant]
     Active Substance: DIPHENHYDRAMINE HYDROCHLORIDE
     Indication: HYPERSENSITIVITY
     Dosage: UNK
     Dates: start: 1970
  41. TYLENOL [Concomitant]
     Active Substance: ACETAMINOPHEN
     Indication: PAIN
     Dosage: UNK
     Dates: start: 1970
  42. CALCIUM [Concomitant]
     Active Substance: CALCIUM
     Indication: SUPPLEMENTATION THERAPY
     Dosage: UNK
     Dates: start: 1984
  43. ALLOPURINOL. [Concomitant]
     Active Substance: ALLOPURINOL
     Indication: GOUT
     Dosage: 100 MG, 1X/DAY
     Route: 048
     Dates: start: 2012
  44. METOPROLOL. [Concomitant]
     Active Substance: METOPROLOL
     Indication: BLOOD PRESSURE ABNORMAL
     Dosage: UNK
  45. PHENERGAN [Concomitant]
     Active Substance: PROMETHAZINE HYDROCHLORIDE
     Indication: VOMITING
  46. NEXIUM [Suspect]
     Active Substance: ESOMEPRAZOLE MAGNESIUM
     Indication: GASTRITIS
     Dosage: UNK
     Dates: start: 2000, end: 2001
  47. PANTOPRAZOLE [Suspect]
     Active Substance: PANTOPRAZOLE
     Dosage: GENERCIC 20.0MG UNKNOWN
     Dates: start: 2014
  48. ASPIRIN. [Concomitant]
     Active Substance: ASPIRIN
     Indication: CARDIAC DISORDER
     Dosage: UNK
     Route: 065
     Dates: start: 2008
  49. ASPIRIN. [Concomitant]
     Active Substance: ASPIRIN
     Dosage: 81.0MG AS REQUIRED
     Route: 048
     Dates: start: 2014
  50. FIORICET [Concomitant]
     Active Substance: ACETAMINOPHEN\BUTALBITAL\CAFFEINE
     Indication: MIGRAINE
     Dosage: UNK
     Dates: start: 1997
  51. TYLENOL [Concomitant]
     Active Substance: ACETAMINOPHEN
     Indication: PYREXIA
  52. VALIUM [Concomitant]
     Active Substance: DIAZEPAM
     Indication: MIGRAINE
  53. ACTIFED (PSEUDOEPHEDRINE HYDROCHLORIDE\TRIPROLIDINE HYDROCHLORIDE) [Concomitant]
     Active Substance: PSEUDOEPHEDRINE HYDROCHLORIDE\TRIPROLIDINE HYDROCHLORIDE
     Indication: HYPERSENSITIVITY
     Dates: start: 1990
  54. COLCRYS [Concomitant]
     Active Substance: COLCHICINE
     Indication: GOUT
     Dosage: 0.6MG AS REQUIRED
     Route: 048
  55. PROTONIX [Suspect]
     Active Substance: PANTOPRAZOLE SODIUM
     Indication: GASTROOESOPHAGEAL REFLUX DISEASE
     Dosage: 20.0MG UNKNOWN
     Dates: start: 2010, end: 2014
  56. OMEPRAZOLE. [Suspect]
     Active Substance: OMEPRAZOLE
     Indication: GASTROOESOPHAGEAL REFLUX DISEASE
     Dosage: GENERIC
     Route: 065
     Dates: start: 2010
  57. CYMBALTA [Concomitant]
     Active Substance: DULOXETINE HYDROCHLORIDE
     Indication: ANXIETY

REACTIONS (4)
  - Nephrogenic anaemia [Unknown]
  - Hyperparathyroidism secondary [Unknown]
  - Chronic kidney disease [Not Recovered/Not Resolved]
  - Renal impairment [Unknown]

NARRATIVE: CASE EVENT DATE: 20120530
